FAERS Safety Report 9052412 (Version 2)
Quarter: 2013Q1

REPORT INFORMATION
  Report Type: Spontaneous
  Country: US (occurrence: US)
  Receive Date: 20130207
  Receipt Date: 20130227
  Transmission Date: 20140127
  Serious: Yes (Death, Other)
  Sender: FDA-Public Use
  Company Number: US-PFIZER INC-2013049019

PATIENT
  Age: 78 Year
  Sex: Male

DRUGS (11)
  1. SUTENT [Suspect]
     Indication: METASTATIC RENAL CELL CARCINOMA
     Dosage: 37.5 MG, DAILY (QD), 4 WEEKS OUT OF 6 WEEKS
     Route: 048
     Dates: start: 201004, end: 20121207
  2. ASPIR-81 [Concomitant]
     Dosage: UNK
  3. ATENOLOL [Concomitant]
     Dosage: UNK
  4. FOLIC ACID [Concomitant]
     Dosage: UNK
  5. LASIX [Concomitant]
     Dosage: UNK
  6. LISINOPRIL [Concomitant]
     Dosage: UNK
  7. NORVASC [Concomitant]
     Dosage: UNK
  8. POTASSIUM [Concomitant]
     Dosage: UNK
  9. SIMVASTATIN [Concomitant]
     Dosage: UNK
  10. METFORMIN HYDROCHLORIDE [Concomitant]
     Dosage: UNK
  11. LANTUS OPTICLIK [Concomitant]
     Dosage: UNK

REACTIONS (1)
  - Death [Fatal]
